FAERS Safety Report 19698665 (Version 5)
Quarter: 2021Q4

REPORT INFORMATION
  Report Type: Spontaneous
  Country: US (occurrence: US)
  Receive Date: 20210813
  Receipt Date: 20211123
  Transmission Date: 20220303
  Serious: Yes (Other)
  Sender: FDA-Public Use
  Company Number: US-GLAXOSMITHKLINE-US2021AMR166322

PATIENT
  Age: 59 Year
  Sex: Female

DRUGS (4)
  1. ZEJULA [Suspect]
     Active Substance: NIRAPARIB
     Indication: Breast cancer female
     Dosage: 200 MG, QD
     Dates: start: 20210727
  2. ZEJULA [Suspect]
     Active Substance: NIRAPARIB
     Dosage: 200 MG, QD
     Route: 048
  3. ZEJULA [Suspect]
     Active Substance: NIRAPARIB
     Dosage: 200 MG, QD
     Route: 048
  4. AVASTIN [Suspect]
     Active Substance: BEVACIZUMAB
     Indication: Product used for unknown indication
     Dosage: UNK

REACTIONS (24)
  - Malignant neoplasm progression [Not Recovered/Not Resolved]
  - Metastases to abdominal cavity [Not Recovered/Not Resolved]
  - Nausea [Unknown]
  - Hypersensitivity [Recovering/Resolving]
  - Red blood cell count decreased [Unknown]
  - Ovarian disorder [Unknown]
  - Contusion [Recovering/Resolving]
  - Carbohydrate antigen 125 increased [Unknown]
  - White blood cell count decreased [Unknown]
  - Abdominal neoplasm [Unknown]
  - Hypertension [Not Recovered/Not Resolved]
  - Ageusia [Unknown]
  - Genital swelling [Unknown]
  - Dizziness [Unknown]
  - Headache [Unknown]
  - Salivary hypersecretion [Unknown]
  - Oesophageal discomfort [Unknown]
  - Dysphonia [Unknown]
  - Laboratory test abnormal [Unknown]
  - Skin reaction [Unknown]
  - Papule [Unknown]
  - Arthralgia [Unknown]
  - Product dose omission issue [Unknown]
  - Off label use [Unknown]

NARRATIVE: CASE EVENT DATE: 20210801
